FAERS Safety Report 22632032 (Version 4)
Quarter: 2023Q4

REPORT INFORMATION
  Report Type: Report from Study
  Country: US (occurrence: US)
  Receive Date: 20230623
  Receipt Date: 20231120
  Transmission Date: 20240110
  Serious: No
  Sender: FDA-Public Use
  Company Number: US-002147023-NVSC2023US137088

PATIENT
  Sex: Female

DRUGS (1)
  1. TABRECTA [Suspect]
     Active Substance: CAPMATINIB
     Indication: Lung cancer metastatic
     Dosage: 400 MG, BID
     Route: 048

REACTIONS (6)
  - Weight increased [Recovering/Resolving]
  - Joint swelling [Recovering/Resolving]
  - White blood cell count [Recovering/Resolving]
  - Oedema [Recovering/Resolving]
  - Cough [Recovering/Resolving]
  - Pleural effusion [Not Recovered/Not Resolved]
